FAERS Safety Report 21324498 (Version 1)
Quarter: 2022Q3

REPORT INFORMATION
  Report Type: Spontaneous
  Country: US (occurrence: US)
  Receive Date: 20220912
  Receipt Date: 20220912
  Transmission Date: 20221027
  Serious: No
  Sender: FDA-Public Use
  Company Number: US-BIOGEN-2022BI01153558

PATIENT
  Sex: Female

DRUGS (15)
  1. AVONEX PEN [Suspect]
     Active Substance: INTERFERON BETA-1A
     Indication: Multiple sclerosis
     Route: 050
  2. AVONEX PEN [Suspect]
     Active Substance: INTERFERON BETA-1A
  3. AVONEX PEN [Suspect]
     Active Substance: INTERFERON BETA-1A
  4. AVONEX PEN [Suspect]
     Active Substance: INTERFERON BETA-1A
  5. GABAPENTIN [Concomitant]
     Active Substance: GABAPENTIN
     Route: 050
  6. OXACILLIN [Concomitant]
     Active Substance: OXACILLIN SODIUM
     Route: 050
  7. LEVOTHYROXINE SODIUM [Concomitant]
     Active Substance: LEVOTHYROXINE SODIUM
     Route: 050
  8. SYNTHROID [Concomitant]
     Active Substance: LEVOTHYROXINE SODIUM
     Route: 050
  9. OMEPRAZOLE [Concomitant]
     Active Substance: OMEPRAZOLE
     Route: 050
  10. SIMVASTATIN [Concomitant]
     Active Substance: SIMVASTATIN
     Route: 050
  11. SOTALOL [Concomitant]
     Active Substance: SOTALOL
     Route: 050
  12. METOPROLOL [Concomitant]
     Active Substance: METOPROLOL
     Route: 050
  13. ELIQUIS [Concomitant]
     Active Substance: APIXABAN
     Route: 050
  14. FLECAINIDE [Concomitant]
     Active Substance: FLECAINIDE
     Route: 050
  15. ENALAPRIL [Concomitant]
     Active Substance: ENALAPRIL
     Route: 050

REACTIONS (5)
  - Infection [Not Recovered/Not Resolved]
  - Injection site haemorrhage [Not Recovered/Not Resolved]
  - Injection site swelling [Not Recovered/Not Resolved]
  - Injection site pain [Not Recovered/Not Resolved]
  - Injection site warmth [Unknown]
